FAERS Safety Report 4289881-2 (Version None)
Quarter: 2004Q1

REPORT INFORMATION
  Report Type: 
  Country: None (occurrence: None)
  Receive Date: 20040209
  Receipt Date: 20040204
  Transmission Date: 20041129
  Serious: Yes (Hospitalization)
  Sender: FDA-Public Use
  Company Number: US-BRISTOL-MYERS SQUIBB COMPANY-12496527

PATIENT

DRUGS (1)
  1. TEQUIN [Suspect]
     Indication: OSTEOMYELITIS

REACTIONS (2)
  - HYPERGLYCAEMIA [None]
  - MENTAL STATUS CHANGES [None]
